FAERS Safety Report 9414246 (Version 2)
Quarter: 2013Q3

REPORT INFORMATION
  Report Type: Spontaneous
  Country: JP (occurrence: JP)
  Receive Date: 20130723
  Receipt Date: 20130830
  Transmission Date: 20140515
  Serious: Yes (Life-Threatening)
  Sender: FDA-Public Use
  Company Number: JP-AMGEN-JPNSP2013050373

PATIENT
  Age: 66 Year
  Sex: Female
  Weight: 53 kg

DRUGS (14)
  1. VECTIBIX [Suspect]
     Indication: COLON CANCER
     Dosage: 340 MG, Q2WK
     Route: 041
     Dates: start: 20110803, end: 20110928
  2. VECTIBIX [Suspect]
     Dosage: 340 MG, Q2WK
     Route: 041
     Dates: start: 20111012, end: 20120510
  3. VECTIBIX [Suspect]
     Dosage: 340 MG, Q2WK
     Route: 041
     Dates: start: 201205, end: 20120705
  4. CALCIUM LEVOFOLINATE [Concomitant]
     Indication: COLON CANCER
     Dosage: UNK UNK, Q2WK
     Route: 041
     Dates: start: 20110803, end: 20110928
  5. CALCIUM LEVOFOLINATE [Concomitant]
     Dosage: UNK UNK, Q2WK
     Route: 041
     Dates: start: 20111012, end: 20120510
  6. CALCIUM LEVOFOLINATE [Concomitant]
     Dosage: UNK UNK, Q2WK
     Route: 041
     Dates: start: 201205, end: 20120705
  7. 5 FU [Concomitant]
     Indication: COLON CANCER
     Dosage: 650 MG, Q2WK
     Route: 040
     Dates: start: 20110803, end: 20110928
  8. 5 FU [Concomitant]
     Dosage: 3400 MG, Q2WK
     Route: 041
     Dates: start: 20110803, end: 20110928
  9. 5 FU [Concomitant]
     Dosage: 600 MG, Q2WK
     Route: 040
     Dates: start: 20111012, end: 20120510
  10. 5 FU [Concomitant]
     Dosage: 3400 MG, Q2WK
     Route: 041
     Dates: start: 20111012, end: 20120510
  11. 5 FU [Concomitant]
     Dosage: UNK UNK, Q2WK
     Route: 042
     Dates: start: 201205, end: 20120705
  12. OXALIPLATIN [Concomitant]
     Indication: COLON CANCER
     Dosage: 135 MG, Q2WK
     Route: 041
     Dates: start: 20110803, end: 20110928
  13. OXALIPLATIN [Concomitant]
     Dosage: UNK UNK, Q2WK
     Route: 041
     Dates: start: 201205, end: 20120705
  14. IRINOTECAN HYDROCHLORIDE [Concomitant]
     Indication: COLON CANCER
     Dosage: 230 UNK, Q2WK
     Route: 041
     Dates: start: 20111012, end: 20120510

REACTIONS (1)
  - Pulmonary embolism [Recovered/Resolved]
